FAERS Safety Report 7237627-8 (Version None)
Quarter: 2011Q1

REPORT INFORMATION
  Report Type: 
  Country: None (occurrence: None)
  Receive Date: 20110118
  Receipt Date: 20110106
  Transmission Date: 20110831
  Serious: Yes (Hospitalization)
  Sender: FDA-Public Use
  Company Number: 025024

PATIENT
  Sex: Male
  Weight: 95 kg

DRUGS (3)
  1. CERTOLIZUMAB PEGOL [Suspect]
     Indication: CROHN'S DISEASE
     Dosage: (400 MG 1X/MONTH, C87085 SUBCUTANEOUS) (400 MG 1X/2 WEEKS, FOR THE FIRST THREE DOSES SUBCUTANEOUS) (
     Route: 058
  2. ESKALITH [Concomitant]
  3. KLONOPIN [Concomitant]

REACTIONS (3)
  - ATELECTASIS [None]
  - DIVERTICULITIS [None]
  - WHITE BLOOD CELL COUNT INCREASED [None]
